FAERS Safety Report 21609660 (Version 1)
Quarter: 2022Q4

REPORT INFORMATION
  Report Type: Report from Study
  Country: US (occurrence: US)
  Receive Date: 20221117
  Receipt Date: 20221117
  Transmission Date: 20230113
  Serious: Yes (Other)
  Sender: FDA-Public Use
  Company Number: US-ABBVIE-4203898

PATIENT
  Sex: Male

DRUGS (2)
  1. HUMIRA [Suspect]
     Active Substance: ADALIMUMAB
     Indication: Colitis ulcerative
     Dosage: FORM STRENGTH: 40 MILLIGRAM
     Route: 058
  2. HUMIRA [Suspect]
     Active Substance: ADALIMUMAB
     Indication: Crohn^s disease

REACTIONS (5)
  - Arterial thrombosis [Unknown]
  - Cerebrovascular accident [Unknown]
  - Dysphagia [Unknown]
  - Pharyngeal stenosis [Unknown]
  - Post procedural complication [Unknown]

NARRATIVE: CASE EVENT DATE: 20200101
